FAERS Safety Report 13550656 (Version 5)
Quarter: 2017Q2

REPORT INFORMATION
  Report Type: Spontaneous
  Country: US (occurrence: US)
  Receive Date: 20170516
  Receipt Date: 20170602
  Transmission Date: 20170830
  Serious: Yes (Other)
  Sender: FDA-Public Use
  Company Number: US-LUNDBECK-DKLU2030867

PATIENT
  Age: 64 Year
  Sex: Male

DRUGS (2)
  1. NORTHERA [Suspect]
     Active Substance: DROXIDOPA
     Indication: AUTONOMIC NEUROPATHY
  2. NORTHERA [Suspect]
     Active Substance: DROXIDOPA
     Indication: ORTHOSTATIC HYPOTENSION
     Route: 048
     Dates: start: 20170420

REACTIONS (10)
  - Generalised tonic-clonic seizure [Recovered/Resolved]
  - Headache [Unknown]
  - Partial seizures [Recovered/Resolved]
  - Dizziness [Recovering/Resolving]
  - Fall [Recovered/Resolved with Sequelae]
  - Inappropriate schedule of drug administration [Unknown]
  - Head injury [Recovered/Resolved with Sequelae]
  - Blood pressure increased [Unknown]
  - Pancreatitis [Unknown]
  - Eye contusion [Recovering/Resolving]

NARRATIVE: CASE EVENT DATE: 201705
